FAERS Safety Report 10009919 (Version 2)
Quarter: 2014Q1

REPORT INFORMATION
  Report Type: Spontaneous
  Country: US (occurrence: US)
  Receive Date: 20140312
  Receipt Date: 20140312
  Transmission Date: 20141002
  Serious: No
  Sender: FDA-Public Use
  Company Number: US-INCYTE CORPORATION-2013IN000056

PATIENT
  Age: 77 Year
  Sex: Male

DRUGS (7)
  1. JAKAFI [Suspect]
     Indication: MYELOFIBROSIS
     Dosage: 15 MG, BID
     Route: 048
     Dates: start: 20130105, end: 201302
  2. JAKAFI [Suspect]
     Dosage: 10 MG, BID
     Route: 048
     Dates: start: 201302
  3. PREDNISONE [Suspect]
     Dosage: 2.5 MG, TIW
     Dates: end: 201302
  4. PREDNISONE [Suspect]
     Dosage: NOT SPECIFIED (TAPERED DOSE)
     Dates: start: 201302, end: 201302
  5. PREDNISONE [Suspect]
     Dosage: NOT SPECIFIED
     Dates: start: 201302
  6. IBUPROFEN [Concomitant]
  7. TYLENOL [Concomitant]

REACTIONS (5)
  - Rash [Unknown]
  - Neck pain [Unknown]
  - Musculoskeletal pain [Unknown]
  - Platelet count decreased [Recovering/Resolving]
  - Herpes zoster [Unknown]
